FAERS Safety Report 21900258 (Version 1)
Quarter: 2023Q1

REPORT INFORMATION
  Report Type: Spontaneous
  Country: US (occurrence: US)
  Receive Date: 20230123
  Receipt Date: 20230123
  Transmission Date: 20230418
  Serious: Yes (Death)
  Sender: FDA-Public Use
  Company Number: US-TAIHO-2023-000376

PATIENT
  Age: 55 Year
  Sex: Male

DRUGS (1)
  1. LONSURF [Suspect]
     Active Substance: TIPIRACIL HYDROCHLORIDE\TRIFLURIDINE
     Indication: Colon neoplasm
     Dosage: CURRENT CYCLE UNKNOWN.?DAILY DOSE: 160 MILLIGRAM(S)
     Route: 048

REACTIONS (1)
  - Colon cancer [Fatal]
